FAERS Safety Report 5778507-4 (Version None)
Quarter: 2008Q2

REPORT INFORMATION
  Report Type: 
  Country: None (occurrence: None)
  Receive Date: 20080619
  Receipt Date: 20080609
  Transmission Date: 20081010
  Serious: Yes (Death)
  Sender: FDA-Public Use
  Company Number: US-AVENTIS-200813623US

PATIENT

DRUGS (1)
  1. LOVENOX [Suspect]
     Dosage: DOSE: UNK
     Route: 051

REACTIONS (3)
  - DRUG INEFFECTIVE [None]
  - POST PROCEDURAL DISCHARGE [None]
  - PULMONARY EMBOLISM [None]
